FAERS Safety Report 15344399 (Version 1)
Quarter: 2018Q3

REPORT INFORMATION
  Report Type: Spontaneous
  Country: IT (occurrence: IT)
  Receive Date: 20180903
  Receipt Date: 20180903
  Transmission Date: 20181010
  Serious: Yes (Other)
  Sender: FDA-Public Use
  Company Number: IT-PFIZER INC-2018348954

PATIENT
  Age: 30 Year
  Sex: Female

DRUGS (1)
  1. XANAX [Suspect]
     Active Substance: ALPRAZOLAM
     Indication: DRUG ABUSE
     Dosage: UNK

REACTIONS (4)
  - Drug abuse [Recovering/Resolving]
  - Anxiety disorder [Recovering/Resolving]
  - Confusional state [Recovering/Resolving]
  - Alcohol poisoning [Recovering/Resolving]

NARRATIVE: CASE EVENT DATE: 20180608
